FAERS Safety Report 23257574 (Version 1)
Quarter: 2023Q4

REPORT INFORMATION
  Report Type: Spontaneous
  Country: CN (occurrence: CN)
  Receive Date: 20231204
  Receipt Date: 20231204
  Transmission Date: 20240110
  Serious: Yes (Hospitalization, Other)
  Sender: FDA-Public Use
  Company Number: CN-PFIZER INC-202101146535

PATIENT
  Age: 73 Year
  Sex: Male
  Weight: 62.9 kg

DRUGS (3)
  1. AVELOX [Suspect]
     Active Substance: MOXIFLOXACIN HYDROCHLORIDE
     Indication: Anti-infective therapy
     Dosage: 0.4 G, QD
     Route: 041
     Dates: start: 20210723, end: 20210810
  2. METRONIDAZOLE\SODIUM CHLORIDE [Suspect]
     Active Substance: METRONIDAZOLE\SODIUM CHLORIDE
     Indication: Anti-infective therapy
     Dosage: 0.8 G, QD
     Route: 041
     Dates: start: 20210803, end: 20210810
  3. CEFOPERAZONE SODIUM\SULBACTAM SODIUM [Suspect]
     Active Substance: CEFOPERAZONE SODIUM\SULBACTAM SODIUM
     Indication: Anti-infective therapy
     Dosage: 3 G, QD
     Route: 041
     Dates: start: 20210722, end: 20210810

REACTIONS (7)
  - Cerebral atrophy [Unknown]
  - Epilepsy [Unknown]
  - Lacunar infarction [Unknown]
  - Cerebral ischaemia [Unknown]
  - Nausea [Unknown]
  - Vomiting [Unknown]
  - Abdominal distension [Unknown]

NARRATIVE: CASE EVENT DATE: 20210808
